FAERS Safety Report 12249581 (Version 2)
Quarter: 2016Q3

REPORT INFORMATION
  Report Type: Spontaneous
  Country: JP (occurrence: JP)
  Receive Date: 20160408
  Receipt Date: 20160805
  Transmission Date: 20161109
  Serious: Yes (Hospitalization)
  Sender: FDA-Public Use
  Company Number: JP-DSJP-DSJ-2016-112076

PATIENT

DRUGS (6)
  1. PABRON S ALFA [Suspect]
     Active Substance: ACETAMINOPHEN\BROMHEXINE\CAFFEINE\CARBINOXAMINE MALEATE\DIHYDROCODEINE\METHYLEPHEDRINE HYDROCHLORIDE, (+/-)-\THIAMINE\RIBOFLAVIN
     Indication: NASOPHARYNGITIS
     Dosage: 3 DF, AS NEEDED
     Route: 048
     Dates: start: 20160401, end: 20160402
  2. EPADEL-S [Concomitant]
     Active Substance: ICOSAPENT ETHYL
     Indication: DYSLIPIDAEMIA
     Dosage: 900 MG, QD
     Route: 048
     Dates: start: 20100813
  3. BISOPROLOL FUMARATE. [Concomitant]
     Active Substance: BISOPROLOL FUMARATE
     Indication: HYPERTENSION
     Dosage: 5 MG, QD
     Route: 048
     Dates: start: 20140808
  4. NEXIUM [Concomitant]
     Active Substance: ESOMEPRAZOLE MAGNESIUM
     Indication: GASTRIC ULCER
     Dosage: 20 MG, QD
     Route: 048
     Dates: start: 20140516
  5. LIXIANA TABLETS [Suspect]
     Active Substance: EDOXABAN TOSILATE MONOHYDRATE
     Indication: ATRIAL FIBRILLATION
     Dosage: 30 MG, QD
     Route: 048
     Dates: start: 20160219, end: 20160404
  6. BEZATOL [Concomitant]
     Active Substance: BEZAFIBRATE
     Indication: DYSLIPIDAEMIA
     Dosage: 200 MG, QD
     Route: 048
     Dates: start: 20131213

REACTIONS (3)
  - Pyrexia [None]
  - Drug eruption [Recovered/Resolved]
  - Purpura [Recovered/Resolved]

NARRATIVE: CASE EVENT DATE: 20160402
